FAERS Safety Report 11372022 (Version 6)
Quarter: 2018Q3

REPORT INFORMATION
  Report Type: Report from Study
  Country: US (occurrence: US)
  Receive Date: 20150812
  Receipt Date: 20180910
  Transmission Date: 20181010
  Serious: Yes (Hospitalization, Other)
  Sender: FDA-Public Use
  Company Number: US-JNJFOC-20150808388

PATIENT
  Age: 84 Year
  Sex: Male

DRUGS (52)
  1. IMBRUVICA [Suspect]
     Active Substance: IBRUTINIB
     Indication: WALDENSTROM^S MACROGLOBULINAEMIA
     Route: 048
     Dates: start: 20140427, end: 201407
  2. IMBRUVICA [Suspect]
     Active Substance: IBRUTINIB
     Indication: WALDENSTROM^S MACROGLOBULINAEMIA
     Route: 048
     Dates: start: 201407, end: 20140908
  3. CALCIUM CARBONATE W/COLECALCIFEROL [Concomitant]
     Active Substance: CALCIUM CARBONATE\CHOLECALCIFEROL
  4. LATANOPROST. [Concomitant]
     Active Substance: LATANOPROST
  5. NAMENDA [Concomitant]
     Active Substance: MEMANTINE HYDROCHLORIDE
  6. FLUOROMETHOLONE. [Concomitant]
     Active Substance: FLUOROMETHOLONE
  7. LEUPRORELIN ACETATE [Concomitant]
     Active Substance: LEUPROLIDE ACETATE
  8. CARDIZEM [Concomitant]
     Active Substance: DILTIAZEM HYDROCHLORIDE
  9. IMBRUVICA [Suspect]
     Active Substance: IBRUTINIB
     Indication: WALDENSTROM^S MACROGLOBULINAEMIA
     Route: 048
     Dates: start: 20141125, end: 20150729
  10. IMBRUVICA [Suspect]
     Active Substance: IBRUTINIB
     Indication: BONE CANCER
     Route: 048
     Dates: start: 20141125, end: 20150729
  11. IMBRUVICA [Suspect]
     Active Substance: IBRUTINIB
     Indication: BONE CANCER
     Route: 048
     Dates: start: 20140405
  12. VITAMIN D [Concomitant]
     Active Substance: CHOLECALCIFEROL
  13. ALENDRONATE [Concomitant]
     Active Substance: ALENDRONATE SODIUM
  14. BACLOFEN. [Concomitant]
     Active Substance: BACLOFEN
  15. POLYSACCHARIDE?IRON COMPLEX [Concomitant]
  16. CASODEX [Concomitant]
     Active Substance: BICALUTAMIDE
  17. IMBRUVICA [Suspect]
     Active Substance: IBRUTINIB
     Indication: PROSTATE CANCER
     Route: 048
     Dates: start: 201407, end: 20140908
  18. IMBRUVICA [Suspect]
     Active Substance: IBRUTINIB
     Indication: PROSTATE CANCER
     Route: 048
     Dates: start: 20141125, end: 20150729
  19. IMBRUVICA [Suspect]
     Active Substance: IBRUTINIB
     Indication: PROSTATE CANCER
     Route: 048
  20. IMBRUVICA [Suspect]
     Active Substance: IBRUTINIB
     Indication: PROSTATE CANCER
     Route: 048
     Dates: start: 20180608
  21. ASPIRIN. [Concomitant]
     Active Substance: ASPIRIN
  22. COQ10 [Concomitant]
     Active Substance: UBIDECARENONE
  23. IMODIUM [Concomitant]
     Active Substance: LOPERAMIDE HYDROCHLORIDE
  24. GABAPENTIN. [Concomitant]
     Active Substance: GABAPENTIN
  25. ROPINIROLE. [Concomitant]
     Active Substance: ROPINIROLE
  26. DONEPEZIL. [Concomitant]
     Active Substance: DONEPEZIL
  27. FISH OIL [Concomitant]
     Active Substance: FISH OIL
  28. REQUIP [Concomitant]
     Active Substance: ROPINIROLE HYDROCHLORIDE
  29. CALCIUM CARBONATE. [Concomitant]
     Active Substance: CALCIUM CARBONATE
  30. IMBRUVICA [Suspect]
     Active Substance: IBRUTINIB
     Indication: PROSTATE CANCER
     Route: 048
     Dates: start: 20140427, end: 201407
  31. IMBRUVICA [Suspect]
     Active Substance: IBRUTINIB
     Indication: WALDENSTROM^S MACROGLOBULINAEMIA
     Route: 048
     Dates: start: 20140405
  32. IMBRUVICA [Suspect]
     Active Substance: IBRUTINIB
     Indication: WALDENSTROM^S MACROGLOBULINAEMIA
     Route: 048
     Dates: start: 20151208
  33. CENTRUM [Concomitant]
     Active Substance: VITAMINS
  34. CALCIUM [Concomitant]
     Active Substance: CALCIUM
  35. TAMIFLU [Concomitant]
     Active Substance: OSELTAMIVIR PHOSPHATE
  36. IMBRUVICA [Suspect]
     Active Substance: IBRUTINIB
     Indication: WALDENSTROM^S MACROGLOBULINAEMIA
     Route: 048
  37. IMBRUVICA [Suspect]
     Active Substance: IBRUTINIB
     Indication: BONE CANCER
     Route: 048
  38. IMBRUVICA [Suspect]
     Active Substance: IBRUTINIB
     Indication: PROSTATE CANCER
     Route: 048
     Dates: start: 20140405
  39. IMBRUVICA [Suspect]
     Active Substance: IBRUTINIB
     Indication: BONE CANCER
     Route: 048
     Dates: start: 20151208
  40. ARICEPT [Concomitant]
     Active Substance: DONEPEZIL HYDROCHLORIDE
  41. IMBRUVICA [Suspect]
     Active Substance: IBRUTINIB
     Indication: BONE CANCER
     Route: 048
     Dates: start: 20180608
  42. IPRATROPIUM [Concomitant]
     Active Substance: IPRATROPIUM
  43. BROMIDEM [Concomitant]
  44. IMBRUVICA [Suspect]
     Active Substance: IBRUTINIB
     Indication: BONE CANCER
     Route: 048
     Dates: start: 20140427, end: 201407
  45. IMBRUVICA [Suspect]
     Active Substance: IBRUTINIB
     Indication: BONE CANCER
     Route: 048
     Dates: start: 201407, end: 20140908
  46. IMBRUVICA [Suspect]
     Active Substance: IBRUTINIB
     Indication: PROSTATE CANCER
     Route: 048
     Dates: start: 20151208
  47. IMBRUVICA [Suspect]
     Active Substance: IBRUTINIB
     Indication: WALDENSTROM^S MACROGLOBULINAEMIA
     Route: 048
     Dates: start: 20180608
  48. BEANO [Concomitant]
     Active Substance: ASPERGILLUS NIGER .ALPHA.-GALACTOSIDASE
  49. FINASTERIDE. [Concomitant]
     Active Substance: FINASTERIDE
  50. FLUOCINONIDE. [Concomitant]
     Active Substance: FLUOCINONIDE
  51. ERYTHROPOIETIN [Concomitant]
     Active Substance: ERYTHROPOIETIN
  52. VITAMIN D3 [Concomitant]
     Active Substance: CHOLECALCIFEROL

REACTIONS (18)
  - Confusional state [Not Recovered/Not Resolved]
  - Atrial fibrillation [Recovered/Resolved]
  - Off label use [Unknown]
  - Tremor [Recovered/Resolved]
  - Gastrointestinal haemorrhage [Unknown]
  - Sepsis [Unknown]
  - Dementia [Unknown]
  - Blood pressure decreased [Unknown]
  - Blood immunoglobulin M increased [Unknown]
  - Dysphagia [Unknown]
  - Gait disturbance [Unknown]
  - Epistaxis [Unknown]
  - Product use in unapproved indication [Unknown]
  - Pneumonia [Unknown]
  - Eye haemorrhage [Recovered/Resolved]
  - Wrong technique in product usage process [Unknown]
  - Pyrexia [Unknown]
  - Urinary tract infection [Unknown]

NARRATIVE: CASE EVENT DATE: 20140424
